FAERS Safety Report 25400330 (Version 1)
Quarter: 2025Q2

REPORT INFORMATION
  Report Type: Spontaneous
  Country: CN (occurrence: CN)
  Receive Date: 20250605
  Receipt Date: 20250605
  Transmission Date: 20250716
  Serious: Yes (Other)
  Sender: ROCHE
  Company Number: CN-ROCHE-10000299519

PATIENT
  Age: 70 Year
  Sex: Female

DRUGS (1)
  1. GAZYVA [Suspect]
     Active Substance: OBINUTUZUMAB
     Indication: Glomerulonephritis membranous
     Route: 042
     Dates: start: 20250430, end: 20250430

REACTIONS (5)
  - Palpitations [Recovering/Resolving]
  - Seizure [Recovering/Resolving]
  - Blood pressure increased [Recovering/Resolving]
  - Muscle rigidity [Recovering/Resolving]
  - Off label use [Unknown]

NARRATIVE: CASE EVENT DATE: 20250430
